FAERS Safety Report 18387859 (Version 1)
Quarter: 2020Q4

REPORT INFORMATION
  Report Type: Spontaneous
  Country: CN (occurrence: CN)
  Receive Date: 20201015
  Receipt Date: 20201015
  Transmission Date: 20210114
  Serious: Yes (Hospitalization, Other)
  Sender: FDA-Public Use
  Company Number: CN-PFIZER INC-2020396965

PATIENT
  Age: 68 Year
  Sex: Male
  Weight: 66 kg

DRUGS (3)
  1. SODIUM CHLORIDE. [Concomitant]
     Active Substance: SODIUM CHLORIDE
     Indication: VEHICLE SOLUTION USE
     Dosage: 200 MG ONCE IN EVERY 21 DAYS(Q3W) 0.9% 100 ML
     Route: 041
     Dates: start: 20200618, end: 20200909
  2. INLYTA [Suspect]
     Active Substance: AXITINIB
     Indication: RENAL NEOPLASM
     Dosage: 5 MG, 2X/DAY
     Route: 048
     Dates: start: 20200730, end: 20200904
  3. BAIZEAN [Concomitant]
     Indication: RENAL NEOPLASM
     Dosage: 200 MG, ONCE IN EVERY 21 DAYS(Q3W)
     Route: 041
     Dates: start: 20200618, end: 20200909

REACTIONS (3)
  - Abdominal pain [Recovering/Resolving]
  - Pyrexia [Recovering/Resolving]
  - Diarrhoea [Recovering/Resolving]

NARRATIVE: CASE EVENT DATE: 20200921
